FAERS Safety Report 5093968-4 (Version None)
Quarter: 2006Q3

REPORT INFORMATION
  Report Type: 
  Country: None (occurrence: None)
  Receive Date: 20060831
  Receipt Date: 20060810
  Transmission Date: 20061208
  Serious: Yes (Other)
  Sender: FDA-Public Use
  Company Number: 2006AP03786

PATIENT
  Age: 19692 Day
  Sex: Male
  Weight: 52 kg

DRUGS (5)
  1. CRESTOR [Suspect]
     Indication: HYPERCHOLESTEROLAEMIA
     Route: 048
     Dates: start: 20060217, end: 20060227
  2. AMARYL [Concomitant]
     Indication: DIABETES MELLITUS
     Route: 048
  3. MICARDIS [Concomitant]
     Indication: ESSENTIAL HYPERTENSION
     Route: 048
  4. 8-HOUR BAYER [Concomitant]
     Indication: ANTIPLATELET THERAPY
     Route: 048
     Dates: start: 20060215
  5. PANALDINE [Concomitant]
     Indication: ANTIPLATELET THERAPY
     Route: 048
     Dates: start: 20060217

REACTIONS (2)
  - SKIN EXFOLIATION [None]
  - TANNING [None]
